FAERS Safety Report 7422967-X (Version None)
Quarter: 2011Q2

REPORT INFORMATION
  Report Type: 
  Country: None (occurrence: None)
  Receive Date: 20110419
  Receipt Date: 20110412
  Transmission Date: 20111010
  Serious: Yes (Life-Threatening, Hospitalization)
  Sender: FDA-Public Use
  Company Number: CZ-BRISTOL-MYERS SQUIBB COMPANY-15671191

PATIENT
  Age: 15 Year
  Sex: Female
  Weight: 57 kg

DRUGS (15)
  1. IFOSFAMIDE [Suspect]
     Dosage: 6NOV09-9NOV09
     Dates: start: 20091106, end: 20091108
  2. CHOLECALCIFEROL [Concomitant]
     Indication: PROPHYLAXIS
     Route: 048
     Dates: start: 20080901
  3. CODEINE [Concomitant]
     Indication: COUGH
     Route: 048
  4. TRAMAL [Concomitant]
     Indication: PAIN
     Route: 042
  5. CLOTRIMAZOLE [Concomitant]
     Indication: INTERTRIGO
     Dosage: CREAM LOCALLY
  6. CYCLOPLATIN [Suspect]
     Dates: start: 20091006, end: 20091107
  7. VEPESID [Suspect]
     Dosage: 6NOV09-9NOV09
     Dates: start: 20091106, end: 20091108
  8. MABTHERA [Suspect]
     Dosage: 6NOV09-9NOV09
     Dates: start: 20091104, end: 20091106
  9. SUMETROLIM [Concomitant]
     Indication: PROPHYLAXIS
     Route: 048
  10. VORICONAZOLE [Concomitant]
     Indication: ASPERGILLOSIS
     Dosage: POWDER FOR SOLN FOR INF 350MG 26OCT09-27OCT09 320MG 27OCT09-30OCT09
     Route: 042
     Dates: start: 20091026, end: 20091030
  11. CARBOCAL [Concomitant]
     Indication: PROPHYLAXIS
     Route: 048
  12. AMPHOTERICIN B [Concomitant]
     Indication: MUCOSAL INFLAMMATION
     Route: 048
  13. BUTAMIRATE CITRATE [Concomitant]
     Indication: COUGH
  14. FUROSEMID PHARMAVIT [Concomitant]
     Indication: FLUID RETENTION
     Route: 042
  15. DICYNONE [Concomitant]
     Indication: HAEMORRHAGE
     Route: 042

REACTIONS (1)
  - FEBRILE NEUTROPENIA [None]
